FAERS Safety Report 20453532 (Version 1)
Quarter: 2022Q1

REPORT INFORMATION
  Report Type: Spontaneous
  Country: US (occurrence: US)
  Receive Date: 20220210
  Receipt Date: 20220210
  Transmission Date: 20220423
  Serious: Yes (Other)
  Sender: FDA-Public Use
  Company Number: US-SPECGX-T202200129

PATIENT
  Age: 6 Day
  Sex: Male

DRUGS (1)
  1. HYDROMORPHONE [Suspect]
     Active Substance: HYDROMORPHONE
     Indication: Product used for unknown indication
     Dosage: UNK
     Route: 063

REACTIONS (3)
  - Bradycardia neonatal [Recovered/Resolved]
  - Infantile apnoea [Recovered/Resolved]
  - Exposure via breast milk [Unknown]
